FAERS Safety Report 12958459 (Version 1)
Quarter: 2016Q4

REPORT INFORMATION
  Report Type: Spontaneous
  Country: US (occurrence: US)
  Receive Date: 20161121
  Receipt Date: 20161121
  Transmission Date: 20170207
  Serious: No
  Sender: FDA-Public Use
  Company Number: TEVA-709246USA

PATIENT
  Age: 78 Year
  Sex: Female

DRUGS (12)
  1. DIAZEPAM. [Suspect]
     Active Substance: DIAZEPAM
     Dates: start: 2014
  2. ALLOPURINOL. [Concomitant]
     Active Substance: ALLOPURINOL
  3. GEMFIBROZIL. [Concomitant]
     Active Substance: GEMFIBROZIL
  4. LEVOTHYROXINE. [Concomitant]
     Active Substance: LEVOTHYROXINE
  5. MACROBID [Concomitant]
     Active Substance: NITROFURANTOIN\NITROFURANTOIN MONOHYDRATE
  6. DIAZEPAM. [Suspect]
     Active Substance: DIAZEPAM
     Indication: ANXIETY
     Dates: start: 2014
  7. CLONIDINE. [Concomitant]
     Active Substance: CLONIDINE
  8. ATENOLOL. [Concomitant]
     Active Substance: ATENOLOL
  9. SODIUM BICARBONATE. [Concomitant]
     Active Substance: SODIUM BICARBONATE
  10. AVELOX [Concomitant]
     Active Substance: MOXIFLOXACIN HYDROCHLORIDE
  11. ADVIL [Concomitant]
     Active Substance: IBUPROFEN
  12. PLAVIX [Concomitant]
     Active Substance: CLOPIDOGREL BISULFATE

REACTIONS (6)
  - Head injury [Unknown]
  - Arthralgia [Unknown]
  - Laceration [Unknown]
  - Hypertension [Unknown]
  - Fall [Unknown]
  - Musculoskeletal pain [Unknown]

NARRATIVE: CASE EVENT DATE: 20160501
